FAERS Safety Report 8340632-1 (Version None)
Quarter: 2012Q2

REPORT INFORMATION
  Report Type: 
  Country: None (occurrence: None)
  Receive Date: 20120507
  Receipt Date: 20120502
  Transmission Date: 20120825
  Serious: Yes (Other)
  Sender: FDA-Public Use
  Company Number: US-ABBOTT-12P-163-0932290-00

PATIENT
  Age: 34 Year
  Sex: Female

DRUGS (3)
  1. TOPICAL OINTMENT [Concomitant]
     Indication: PSORIASIS
  2. HUMIRA [Suspect]
     Indication: PSORIASIS
     Dates: start: 20100101, end: 20111201
  3. HYDROCODONE [Concomitant]
     Indication: ARTHRALGIA
     Route: 048

REACTIONS (1)
  - ABORTION SPONTANEOUS [None]
